FAERS Safety Report 12718430 (Version 1)
Quarter: 2016Q3

REPORT INFORMATION
  Report Type: Not Available
  Country: None (occurrence: US)
  Receive Date: 20160906
  Receipt Date: 20160906
  Transmission Date: 20161109
  Serious: Yes (Other)
  Sender: FDA-Public Use
  Company Number: US-AKORN-38045

PATIENT
  Sex: Female

DRUGS (1)
  1. METHYLENE BLUE 10MG/ML INJECTION, USP [Suspect]
     Active Substance: METHYLENE BLUE

REACTIONS (2)
  - Necrosis [Unknown]
  - Off label use [None]
